FAERS Safety Report 6434043-3 (Version None)
Quarter: 2009Q4

REPORT INFORMATION
  Report Type: 
  Country: None (occurrence: None)
  Receive Date: 20091110
  Receipt Date: 20090812
  Transmission Date: 20100525
  Serious: No
  Sender: FDA-Public Use
  Company Number: US-ASTRAZENECA-2009SE12520

PATIENT
  Sex: Male

DRUGS (2)
  1. PRILOSEC OTC [Suspect]
     Indication: DYSPEPSIA
     Dosage: 1 TABLET, 2 /DAY FOR 12 DAYS
     Route: 048
     Dates: start: 20090729, end: 20090809
  2. MEDICATION FOR ENLARGED PROSTATE [Concomitant]
     Indication: PROSTATOMEGALY
     Dosage: UNKNOWN

REACTIONS (2)
  - DRUG INEFFECTIVE [None]
  - INAPPROPRIATE SCHEDULE OF DRUG ADMINISTRATION [None]
